FAERS Safety Report 6860196-9 (Version None)
Quarter: 2010Q3

REPORT INFORMATION
  Report Type: 
  Country: None (occurrence: None)
  Receive Date: 20100719
  Receipt Date: 20100719
  Transmission Date: 20110219
  Serious: Yes (Hospitalization)
  Sender: FDA-Public Use
  Company Number: None

PATIENT
  Age: 59 Year
  Sex: Male
  Weight: 88.54 kg

DRUGS (3)
  1. INTERFERON [Suspect]
     Indication: MALIGNANT MELANOMA
     Dosage: 4MU/M2
     Dates: start: 20100201
  2. ZOFRAN [Concomitant]
  3. ANTIVERT [Concomitant]

REACTIONS (4)
  - DIZZINESS [None]
  - NAUSEA [None]
  - PRESYNCOPE [None]
  - VERTIGO [None]
